FAERS Safety Report 10652696 (Version 1)
Quarter: 2014Q4

REPORT INFORMATION
  Report Type: Spontaneous
  Country: FI (occurrence: FI)
  Receive Date: 20141215
  Receipt Date: 20141215
  Transmission Date: 20150529
  Serious: No
  Sender: FDA-Public Use
  Company Number: FI-B.I. PHARMACEUTICALS,INC./RIDGEFIELD-2014-BI-59809SF

PATIENT
  Age: 81 Year
  Sex: Female

DRUGS (21)
  1. ESSEX [Concomitant]
     Indication: ILL-DEFINED DISORDER
     Route: 061
  2. VISCOTEARS [Concomitant]
     Active Substance: CARBOMER
     Indication: DRY EYE
     Route: 031
  3. METOPROLOL TARTRATE. [Concomitant]
     Active Substance: METOPROLOL TARTRATE
     Indication: ARRHYTHMIA PROPHYLAXIS
     Dosage: 95 MG
     Route: 065
  4. PHYSIOTENS [Concomitant]
     Active Substance: MOXONIDINE
     Indication: HYPERTENSION
     Dosage: 0.4 MG
     Route: 065
  5. ADALAT [Concomitant]
     Active Substance: NIFEDIPINE
     Indication: HYPERTENSION
     Dosage: 120 MG
     Route: 065
  6. OPAMOX [Concomitant]
     Indication: NERVOUSNESS
  7. FURESIS [Concomitant]
     Active Substance: FUROSEMIDE
     Indication: OEDEMA
     Dosage: 60 MG
     Route: 065
  8. SOMAC [Concomitant]
     Active Substance: PANTOPRAZOLE SODIUM
     Indication: PRODUCT USED FOR UNKNOWN INDICATION
     Dosage: 40 MG
     Route: 065
  9. APURIN SANDOZ [Concomitant]
     Active Substance: ALLOPURINOL
     Indication: GOUT
     Dosage: 100 MG
     Route: 065
  10. BEMETSON [Concomitant]
     Indication: DERMATITIS ATOPIC
     Route: 065
  11. APOLAR [Concomitant]
     Indication: ECZEMA
     Route: 065
  12. LAXOBERON [Concomitant]
     Active Substance: SODIUM PICOSULFATE
     Indication: CONSTIPATION
     Dosage: 5 MG
     Route: 065
  13. PANADOL FORTE [Concomitant]
     Indication: PAIN
     Dosage: 3 G
     Route: 065
  14. JENTADUETO [Suspect]
     Active Substance: LINAGLIPTIN\METFORMIN HYDROCHLORIDE
     Indication: DIABETES MELLITUS
     Dosage: DOSE PER APPLICATION: 2.5/850 MG; DAILY DOSE: 5/1700MG
     Route: 048
     Dates: start: 20141111, end: 20141125
  15. COHEMIN DEPOT [Concomitant]
     Indication: VITAMIN B12 DEFICIENCY
     Dosage: 0.0111 MG
     Route: 065
  16. OPAMOX [Concomitant]
     Indication: ANXIETY
     Dosage: 15 MG
     Route: 065
  17. GALVUS [Concomitant]
     Active Substance: VILDAGLIPTIN
     Indication: TYPE 2 DIABETES MELLITUS
     Dosage: 100 MG
     Route: 065
  18. DIFORMIN RETARD [Concomitant]
     Active Substance: METFORMIN HYDROCHLORIDE
     Indication: TYPE 2 DIABETES MELLITUS
     Dosage: 1500 MG
     Route: 065
  19. LINATIL [Concomitant]
     Active Substance: ENALAPRIL MALEATE
     Indication: PRODUCT USED FOR UNKNOWN INDICATION
     Dosage: 40 MG
     Route: 065
  20. LITALGIN [Concomitant]
     Active Substance: PITOFENONE
     Indication: GASTROINTESTINAL PAIN
     Dosage: DOSE PER APPLICATION: 500/5MG AND DAILY DOSE: 1500/15MG
     Route: 065
  21. FURESIS [Concomitant]
     Active Substance: FUROSEMIDE
     Indication: HYPERTENSION

REACTIONS (4)
  - Peripheral swelling [Not Recovered/Not Resolved]
  - Urticaria [Not Recovered/Not Resolved]
  - Erythema [Not Recovered/Not Resolved]
  - Pruritus [Not Recovered/Not Resolved]

NARRATIVE: CASE EVENT DATE: 20141125
